FAERS Safety Report 4941089-0 (Version None)
Quarter: 2006Q1

REPORT INFORMATION
  Report Type: 
  Country: None (occurrence: None)
  Receive Date: 20060313
  Receipt Date: 20060213
  Transmission Date: 20060701
  Serious: Yes (Hospitalization)
  Sender: FDA-Public Use
  Company Number: PHBS2006FR02320

PATIENT
  Age: 71 Year
  Sex: Female

DRUGS (4)
  1. CIBADREX [Suspect]
     Indication: HYPERTENSION
     Dosage: 10 MG/DAY
     Route: 048
     Dates: start: 20040101, end: 20051101
  2. LACHESIS [Concomitant]
     Dosage: UNK, QW
  3. PHOSPHORUS [Concomitant]
     Dosage: UNK, QW
  4. NUX VOMICA HOMACCORD [Concomitant]
     Dosage: 5 GRANULES/DAY

REACTIONS (1)
  - PEMPHIGOID [None]
